FAERS Safety Report 8232195-6 (Version None)
Quarter: 2012Q1

REPORT INFORMATION
  Report Type: 
  Country: None (occurrence: None)
  Receive Date: 20120323
  Receipt Date: 20120313
  Transmission Date: 20120608
  Serious: Yes (Other)
  Sender: FDA-Public Use
  Company Number: ES-NOVOPROD-347171

PATIENT
  Age: 45 Year
  Sex: Male

DRUGS (8)
  1. METFORMIN HCL [Concomitant]
     Indication: TYPE 2 DIABETES MELLITUS
     Dosage: 1700 MG, QD
     Route: 048
  2. INDAPAMIDE [Concomitant]
     Indication: HYPERTENSION
     Dosage: 1.5 MG, QD
     Route: 048
  3. LEVEMIR [Concomitant]
     Indication: TYPE 2 DIABETES MELLITUS
     Dosage: 30 U, QD
     Route: 058
  4. AMARYL [Concomitant]
     Indication: TYPE 2 DIABETES MELLITUS
     Dosage: 4 MG, QD
     Route: 048
  5. VICTOZA [Suspect]
     Indication: TYPE 2 DIABETES MELLITUS
     Dosage: 1.2 MG, QD
     Route: 058
     Dates: start: 20111205, end: 20120125
  6. TRYPTIZOL                          /00002202/ [Concomitant]
     Dosage: 100 MG, QD
     Route: 048
  7. ASPIRIN [Concomitant]
     Dosage: 100 MG, QD
     Route: 048
  8. ASTUCOR [Concomitant]
     Dosage: 10/10 MG
     Route: 048

REACTIONS (2)
  - ATRIAL FIBRILLATION [None]
  - ABDOMINAL PAIN [None]
